FAERS Safety Report 24993878 (Version 1)
Quarter: 2025Q1

REPORT INFORMATION
  Report Type: Report from Study
  Country: US (occurrence: US)
  Receive Date: 20250221
  Receipt Date: 20250221
  Transmission Date: 20250409
  Serious: Yes (Other)
  Sender: SUNOVION
  Company Number: US-SMPA-2025SPA001948

PATIENT

DRUGS (2)
  1. ORGOVYX [Suspect]
     Active Substance: RELUGOLIX
     Indication: Prostate cancer
     Route: 048
     Dates: start: 20220225, end: 20220225
  2. ORGOVYX [Suspect]
     Active Substance: RELUGOLIX
     Dosage: 120 MG, QD
     Route: 048
     Dates: start: 20220226

REACTIONS (9)
  - Basal cell carcinoma [Unknown]
  - Intervertebral disc degeneration [Unknown]
  - Mental disorder [Unknown]
  - Incontinence [Unknown]
  - Decreased activity [Unknown]
  - Lymphoedema [Unknown]
  - Hypersomnia [Unknown]
  - Sleep disorder [Unknown]
  - Fatigue [Unknown]
